FAERS Safety Report 24453585 (Version 2)
Quarter: 2024Q4

REPORT INFORMATION
  Report Type: Report from Study
  Country: US (occurrence: US)
  Receive Date: 20241017
  Receipt Date: 20241018
  Transmission Date: 20250115
  Serious: No
  Sender: ROCHE
  Company Number: US-ROCHE-3386695

PATIENT
  Age: 62 Year
  Sex: Female

DRUGS (2)
  1. RITUXAN [Suspect]
     Active Substance: RITUXIMAB
     Indication: Sjogren^s syndrome
     Dosage: DOS: 04-JAN-2024, 29-JAN-2024, 22-DEC-2022, 08-DEC-2022, 08-JUN-2022, 25-MAY-2022, 24-NOV-2021, 11-N
     Route: 042
  2. RITUXAN [Suspect]
     Active Substance: RITUXIMAB
     Indication: Osteoarthritis

REACTIONS (2)
  - Off label use [Unknown]
  - No adverse event [Unknown]
